FAERS Safety Report 16352392 (Version 2)
Quarter: 2019Q3

REPORT INFORMATION
  Report Type: Spontaneous
  Country: CA (occurrence: CA)
  Receive Date: 20190524
  Receipt Date: 20190930
  Transmission Date: 20191004
  Serious: Yes (Hospitalization, Other)
  Sender: FDA-Public Use
  Company Number: CA-TEVA-2019-CA-1052058

PATIENT
  Age: 55 Year
  Sex: Female

DRUGS (19)
  1. DESMOPRESSIN [Interacting]
     Active Substance: DESMOPRESSIN
     Indication: DIABETES INSIPIDUS
     Dosage: INTRA
     Route: 045
  2. VASOPRESSIN INJECTION, USP [Concomitant]
     Active Substance: VASOPRESSIN
  3. HYDROCORTISONE. [Concomitant]
     Active Substance: HYDROCORTISONE
  4. HYDROMORPHONE [Interacting]
     Active Substance: HYDROMORPHONE
     Indication: PAIN
     Dosage: AS REQUIRED
     Route: 058
  5. DICLOFENAC/MISOPROSTOL [Concomitant]
     Active Substance: DICLOFENAC SODIUM\MISOPROSTOL
  6. DESMOPRESSIN [Interacting]
     Active Substance: DESMOPRESSIN
     Route: 045
  7. DESMOPRESSIN [Interacting]
     Active Substance: DESMOPRESSIN
     Dosage: 1.4 MILLIGRAM DAILY;
     Route: 048
  8. DESMOPRESSIN [Interacting]
     Active Substance: DESMOPRESSIN
     Dosage: 2.4 MILLIGRAM DAILY;
     Route: 048
  9. DOMPERIDONE [Concomitant]
     Active Substance: DOMPERIDONE
  10. DESMOPRESSIN [Interacting]
     Active Substance: DESMOPRESSIN
     Dosage: 1.6 MILLIGRAM DAILY;
     Route: 048
  11. HYDROMORPHONE [Suspect]
     Active Substance: HYDROMORPHONE
     Indication: PAIN
     Route: 065
  12. SALBUTAMOL [Concomitant]
     Active Substance: ALBUTEROL
  13. DESMOPRESSIN [Suspect]
     Active Substance: DESMOPRESSIN
     Indication: DIABETES INSIPIDUS
     Dosage: 1.2 MILLIGRAM DAILY;
     Route: 048
  14. DESMOPRESSIN [Interacting]
     Active Substance: DESMOPRESSIN
     Route: 045
  15. LEVOTHYROXINE. [Concomitant]
     Active Substance: LEVOTHYROXINE
  16. SYMBICORT [Concomitant]
     Active Substance: BUDESONIDE\FORMOTEROL FUMARATE DIHYDRATE
  17. RABEPRAZOLE [Concomitant]
     Active Substance: RABEPRAZOLE
  18. PREDNISONE. [Concomitant]
     Active Substance: PREDNISONE
  19. IPRATROPIUM [Concomitant]
     Active Substance: IPRATROPIUM

REACTIONS (2)
  - Drug interaction [Unknown]
  - Hyponatraemia [Unknown]
